FAERS Safety Report 13576707 (Version 15)
Quarter: 2018Q2

REPORT INFORMATION
  Report Type: Report from Study
  Country: CA (occurrence: CA)
  Receive Date: 20170524
  Receipt Date: 20180601
  Transmission Date: 20180711
  Serious: Yes (Hospitalization)
  Sender: FDA-Public Use
  Company Number: CA-GLAXOSMITHKLINE-CA2017GSK077313

PATIENT
  Age: 65 Year
  Sex: Female

DRUGS (38)
  1. QUETIAPINE. [Suspect]
     Active Substance: QUETIAPINE
     Indication: PRODUCT USED FOR UNKNOWN INDICATION
     Dosage: 50 MG, BID
     Route: 065
  2. COSENTYX [Suspect]
     Active Substance: SECUKINUMAB
     Indication: PSORIASIS
     Dosage: 300 MG, WE
     Route: 058
     Dates: start: 20170508
  3. COSENTYX [Suspect]
     Active Substance: SECUKINUMAB
     Dosage: 300 MG, Z
     Route: 058
     Dates: start: 20170807
  4. COSENTYX [Suspect]
     Active Substance: SECUKINUMAB
     Dosage: 300 MG, UNK
     Route: 058
     Dates: start: 2017, end: 20171206
  5. COSENTYX [Suspect]
     Active Substance: SECUKINUMAB
     Dosage: 300 MG, WE
     Route: 058
     Dates: start: 20170516
  6. COSENTYX [Suspect]
     Active Substance: SECUKINUMAB
     Dosage: 300 MG, Z
     Route: 058
     Dates: start: 20171005
  7. OTEZLA [Concomitant]
     Active Substance: APREMILAST
  8. ACITRETIN. [Concomitant]
     Active Substance: ACITRETIN
  9. KERTYOL (SALICYLIC ACID) [Concomitant]
  10. PULMICORT TURBUHALER [Concomitant]
     Active Substance: BUDESONIDE
  11. CLONIDINE. [Concomitant]
     Active Substance: CLONIDINE
  12. TIAZAC [Concomitant]
     Active Substance: DILTIAZEM HYDROCHLORIDE
  13. IODINE. [Suspect]
     Active Substance: IODINE
     Indication: PRODUCT USED FOR UNKNOWN INDICATION
     Dosage: UNK
  14. COSENTYX [Suspect]
     Active Substance: SECUKINUMAB
     Dosage: 300 MG, WE
     Route: 058
     Dates: start: 20170530
  15. COSENTYX [Suspect]
     Active Substance: SECUKINUMAB
     Dosage: 300 MG, UNK
     Route: 058
     Dates: start: 20180108
  16. RATIO-TOPILENE [Concomitant]
  17. COSENTYX [Suspect]
     Active Substance: SECUKINUMAB
     Dosage: 300 MG, Z
     Route: 058
     Dates: start: 20170907
  18. DIPROSONE [Concomitant]
     Active Substance: BETAMETHASONE DIPROPIONATE
  19. SYNTHROID [Concomitant]
     Active Substance: LEVOTHYROXINE SODIUM
  20. TERBINAFINE. [Suspect]
     Active Substance: TERBINAFINE
     Indication: PRODUCT USED FOR UNKNOWN INDICATION
     Dosage: UNK
  21. FUROSEMIDE. [Suspect]
     Active Substance: FUROSEMIDE
     Indication: PRODUCT USED FOR UNKNOWN INDICATION
     Dosage: 40 MG, BID
     Route: 065
  22. COSENTYX [Suspect]
     Active Substance: SECUKINUMAB
     Dosage: 300 MG, UNK
     Route: 058
     Dates: start: 20171206
  23. DOVOBET [Concomitant]
     Active Substance: BETAMETHASONE\CALCIPOTRIENE
  24. HYDROXYZINE [Concomitant]
     Active Substance: HYDROXYZINE HYDROCHLORIDE
  25. DOMPERIDONE [Concomitant]
     Active Substance: DOMPERIDONE
  26. PREGABALIN. [Concomitant]
     Active Substance: PREGABALIN
  27. NOVORAPID [Concomitant]
     Active Substance: INSULIN ASPART
  28. CYCLOSPORIN [Suspect]
     Active Substance: CYCLOSPORINE
     Indication: PRODUCT USED FOR UNKNOWN INDICATION
     Dosage: UNK
  29. VITAMIN D2 [Suspect]
     Active Substance: ERGOCALCIFEROL
     Indication: PRODUCT USED FOR UNKNOWN INDICATION
     Dosage: UNK
  30. COSENTYX [Suspect]
     Active Substance: SECUKINUMAB
     Dosage: 300 MG, WE
     Route: 058
     Dates: start: 20170606
  31. ONE ALPHA [Concomitant]
     Active Substance: ALFACALCIDOL
  32. METHOTREXATE. [Suspect]
     Active Substance: METHOTREXATE
     Indication: PRODUCT USED FOR UNKNOWN INDICATION
     Dosage: UNK
  33. TARO CLOBETASOL [Concomitant]
  34. OXEZE [Concomitant]
     Active Substance: FORMOTEROL FUMARATE
  35. ATORVASTATIN [Suspect]
     Active Substance: ATORVASTATIN
     Indication: PRODUCT USED FOR UNKNOWN INDICATION
     Dosage: 40 MG, UNK
     Route: 065
  36. COSENTYX [Suspect]
     Active Substance: SECUKINUMAB
     Dosage: 300 MG, Z
     Route: 058
     Dates: start: 20170704
  37. COSENTYX [Suspect]
     Active Substance: SECUKINUMAB
     Dosage: 300 MG, Z
     Route: 058
     Dates: start: 20170508
  38. NOVOLIN NPH [Concomitant]
     Active Substance: INSULIN HUMAN

REACTIONS (23)
  - Headache [Unknown]
  - Back pain [Unknown]
  - Fall [Unknown]
  - Skin discolouration [Unknown]
  - Sensory disturbance [Not Recovered/Not Resolved]
  - Infection [Unknown]
  - Hypoglycaemia [Unknown]
  - Contusion [Unknown]
  - Renal disorder [Unknown]
  - Weight decreased [Unknown]
  - Incorrect dose administered [Unknown]
  - Skin atrophy [Unknown]
  - Poor quality sleep [Unknown]
  - Pain in extremity [Recovering/Resolving]
  - Gait inability [Unknown]
  - Dysuria [Unknown]
  - Anxiety [Recovering/Resolving]
  - Blood pressure decreased [Unknown]
  - Syncope [Unknown]
  - Heart rate decreased [Unknown]
  - Peripheral swelling [Recovering/Resolving]
  - Wrong technique in device usage process [Unknown]
  - Dyspnoea [Unknown]

NARRATIVE: CASE EVENT DATE: 201705
